FAERS Safety Report 5660994-3 (Version None)
Quarter: 2008Q1

REPORT INFORMATION
  Report Type: 
  Country: None (occurrence: None)
  Receive Date: 20080311
  Receipt Date: 20080228
  Transmission Date: 20080703
  Serious: Yes (Hospitalization, Other)
  Sender: FDA-Public Use
  Company Number: AU-PFIZER INC-2008016371

PATIENT
  Age: 38 Year
  Sex: Female

DRUGS (3)
  1. CHANTIX [Suspect]
     Indication: SMOKING CESSATION THERAPY
     Route: 048
     Dates: start: 20080101, end: 20080101
  2. EFFEXOR [Interacting]
     Indication: DEPRESSION
  3. EFFEXOR XR [Concomitant]

REACTIONS (3)
  - DEPRESSION [None]
  - DRUG INTERACTION [None]
  - SUICIDE ATTEMPT [None]
